FAERS Safety Report 18538458 (Version 1)
Quarter: 2020Q4

REPORT INFORMATION
  Report Type: Spontaneous
  Country: CH (occurrence: CH)
  Receive Date: 20201124
  Receipt Date: 20201124
  Transmission Date: 20210114
  Serious: Yes (Other)
  Sender: FDA-Public Use
  Company Number: CH-TEVA-2020-CH-1850327

PATIENT

DRUGS (1)
  1. OLFEN (DICLOFENAC) [Suspect]
     Active Substance: DICLOFENAC
     Route: 065

REACTIONS (10)
  - Gastrointestinal disorder [Unknown]
  - Dyspnoea at rest [Unknown]
  - Decreased appetite [Unknown]
  - Dyspnoea [Unknown]
  - Nausea [Unknown]
  - Diarrhoea [Unknown]
  - Chest pain [Unknown]
  - Peripheral swelling [Unknown]
  - Vomiting [Unknown]
  - Abdominal pain [Unknown]
